FAERS Safety Report 16264835 (Version 1)
Quarter: 2019Q2

REPORT INFORMATION
  Report Type: Spontaneous
  Country: US (occurrence: US)
  Receive Date: 20190426
  Receipt Date: 20190426
  Transmission Date: 20190711
  Serious: No
  Sender: FDA-Public Use
  Company Number: None

PATIENT
  Age: 69 Year
  Sex: Male

DRUGS (1)
  1. TAFINLAR [Suspect]
     Active Substance: DABRAFENIB MESYLATE
     Dates: start: 20190325

REACTIONS (5)
  - Chills [None]
  - Cardiac disorder [None]
  - Lung disorder [None]
  - Hyperhidrosis [None]
  - Electrolyte imbalance [None]

NARRATIVE: CASE EVENT DATE: 20190426
